FAERS Safety Report 6566972-4 (Version None)
Quarter: 2010Q1

REPORT INFORMATION
  Report Type: 
  Country: None (occurrence: None)
  Receive Date: 20100202
  Receipt Date: 20100128
  Transmission Date: 20100710
  Serious: Yes (Other)
  Sender: FDA-Public Use
  Company Number: AU-RB-001372-10

PATIENT
  Sex: Female

DRUGS (1)
  1. NORSPAN 5 [Suspect]
     Indication: PAIN
     Dosage: 5 MCG/HR
     Route: 062
     Dates: start: 20081015, end: 20081115

REACTIONS (4)
  - CONFUSIONAL STATE [None]
  - HALLUCINATION, VISUAL [None]
  - LOWER RESPIRATORY TRACT INFECTION [None]
  - PYREXIA [None]
